FAERS Safety Report 18474512 (Version 4)
Quarter: 2021Q3

REPORT INFORMATION
  Report Type: Spontaneous
  Country: US (occurrence: US)
  Receive Date: 20201106
  Receipt Date: 20210902
  Transmission Date: 20211014
  Serious: Yes (Hospitalization, Other)
  Sender: FDA-Public Use
  Company Number: US-BIOMARINAP-US-2020-133061

PATIENT
  Age: 8 Month
  Sex: Male

DRUGS (1)
  1. ALDURAZYME [Suspect]
     Active Substance: LARONIDASE
     Indication: MUCOPOLYSACCHARIDOSIS I
     Dosage: 8.70 MILLIGRAM, QW
     Route: 042
     Dates: start: 20201027

REACTIONS (2)
  - Hospitalisation [Recovering/Resolving]
  - Vascular device infection [Unknown]

NARRATIVE: CASE EVENT DATE: 20210628
